FAERS Safety Report 16326196 (Version 1)
Quarter: 2019Q2

REPORT INFORMATION
  Report Type: Spontaneous
  Country: US (occurrence: US)
  Receive Date: 20190517
  Receipt Date: 20190517
  Transmission Date: 20190711
  Serious: Yes (Other)
  Sender: FDA-Public Use
  Company Number: US-SUPERNUS PHARMACEUTICALS, INC.-2019SUP00305

PATIENT
  Age: 71 Year
  Sex: Female
  Weight: 68.04 kg

DRUGS (11)
  1. TROKENDI XR [Suspect]
     Active Substance: TOPIRAMATE
     Indication: TRIGEMINAL NEURALGIA
     Dosage: 50 MG, 1X/DAY FOR 7 CAPSULES UNTIL GONE
     Route: 048
     Dates: start: 20190416, end: 20190422
  2. UNSPECIFIED SHOTS [Concomitant]
     Dosage: UNK
     Dates: start: 20190416
  3. LYRICA [Suspect]
     Active Substance: PREGABALIN
     Indication: NEURALGIA
     Dosage: 75 MG, 3X/DAY
     Route: 048
  4. LYRICA [Suspect]
     Active Substance: PREGABALIN
     Indication: NEURALGIA
     Dosage: 100 MG, 3X/DAY
     Route: 048
     Dates: start: 2019, end: 20190426
  5. 2 UNSPECIFIED BLOOD PRESSURE MEDICATIONS [Concomitant]
  6. ASPIRIN. [Concomitant]
     Active Substance: ASPIRIN
  7. TROKENDI XR [Suspect]
     Active Substance: TOPIRAMATE
     Indication: TRIGEMINAL NEURALGIA
     Dosage: 100 MG, 1X/DAY
     Route: 048
     Dates: start: 20190423, end: 20190426
  8. ANORO ELLIPTA [Concomitant]
     Active Substance: UMECLIDINIUM BROMIDE\VILANTEROL TRIFENATATE
  9. SODIUM PILLS [Concomitant]
     Dosage: UNK
     Dates: end: 20190424
  10. PRIMIDONE. [Concomitant]
     Active Substance: PRIMIDONE
  11. VIIBRYD [Concomitant]
     Active Substance: VILAZODONE HYDROCHLORIDE

REACTIONS (18)
  - Erythema [Unknown]
  - Disorientation [Recovering/Resolving]
  - Speech disorder [Recovering/Resolving]
  - Productive cough [Not Recovered/Not Resolved]
  - Drug ineffective for unapproved indication [Recovered/Resolved]
  - Somnolence [Recovered/Resolved]
  - Insomnia [Not Recovered/Not Resolved]
  - Tremor [Recovering/Resolving]
  - Memory impairment [Recovering/Resolving]
  - Pruritus [Unknown]
  - Nightmare [Recovered/Resolved]
  - Hallucination, auditory [Recovered/Resolved]
  - Diarrhoea [Recovered/Resolved]
  - Euphoric mood [Recovering/Resolving]
  - Eye disorder [Unknown]
  - Diplopia [Recovered/Resolved]
  - Dizziness [Recovering/Resolving]
  - Abnormal behaviour [Recovering/Resolving]

NARRATIVE: CASE EVENT DATE: 201904
